FAERS Safety Report 5324957-X (Version None)
Quarter: 2007Q2

REPORT INFORMATION
  Report Type: 
  Country: None (occurrence: None)
  Receive Date: 20070510
  Receipt Date: 20070510
  Transmission Date: 20071010
  Serious: Yes (Hospitalization)
  Sender: FDA-Public Use
  Company Number: None

PATIENT
  Sex: Male
  Weight: 99.8 kg

DRUGS (1)
  1. TEMOZOLOMIDE [Suspect]
     Dosage: 230 MG

REACTIONS (2)
  - LOSS OF CONSCIOUSNESS [None]
  - PNEUMOCYSTIS JIROVECI INFECTION [None]
